FAERS Safety Report 5641023-4 (Version None)
Quarter: 2008Q1

REPORT INFORMATION
  Report Type: 
  Country: None (occurrence: None)
  Receive Date: 20080225
  Receipt Date: 20080207
  Transmission Date: 20080703
  Serious: Yes (Other)
  Sender: FDA-Public Use
  Company Number: 8029308

PATIENT
  Age: 47 Year
  Sex: Male

DRUGS (3)
  1. PREDNISOLONE [Suspect]
     Dosage: 12 MG /D PO
     Route: 048
     Dates: start: 20050501
  2. PREDNISOLONE [Suspect]
     Dosage: 60 MG /D PO
     Route: 048
     Dates: start: 20051201
  3. PREDNISOLONE [Suspect]
     Dosage: 15 MG /D PO
     Route: 048

REACTIONS (4)
  - INTERSTITIAL LUNG DISEASE [None]
  - MUSCULAR WEAKNESS [None]
  - NO THERAPEUTIC RESPONSE [None]
  - PULMONARY HYPERTENSION [None]
